FAERS Safety Report 5025794-6 (Version None)
Quarter: 2006Q2

REPORT INFORMATION
  Report Type: 
  Country: None (occurrence: None)
  Receive Date: 20060427
  Receipt Date: 20050325
  Transmission Date: 20061013
  Serious: Yes (Other)
  Sender: FDA-Public Use
  Company Number: 2005050342

PATIENT
  Age: 65 Year
  Sex: Male

DRUGS (10)
  1. ZITHROMAX [Suspect]
     Indication: RESPIRATORY TRACT INFECTION
     Dosage: 250 MG (250 MG, QD), ORAL
     Route: 048
     Dates: start: 20050323
  2. CLOPIDOGREL BISULFATE [Concomitant]
  3. METFORMIN [Concomitant]
  4. LISINOPRIL [Concomitant]
  5. BUPROPION (BUPROPION) [Concomitant]
  6. CARBOPLATIN [Concomitant]
  7. SIMVASTATIN [Concomitant]
  8. SERTRALINE HCL [Concomitant]
  9. MIRTAZAPINE [Concomitant]
  10. RANITIDINE [Concomitant]

REACTIONS (2)
  - BLOOD CREATININE INCREASED [None]
  - BLOOD POTASSIUM INCREASED [None]
